FAERS Safety Report 7293625-X (Version None)
Quarter: 2011Q1

REPORT INFORMATION
  Report Type: 
  Country: None (occurrence: None)
  Receive Date: 20110215
  Receipt Date: 20110215
  Transmission Date: 20110831
  Serious: Yes (Death, Hospitalization)
  Sender: FDA-Public Use
  Company Number: A0902042A

PATIENT
  Age: 83 Year
  Sex: Female

DRUGS (2)
  1. AVANDIA [Suspect]
     Dosage: 8MG PER DAY
     Route: 048
  2. INSULIN [Concomitant]

REACTIONS (6)
  - ADVERSE EVENT [None]
  - FALL [None]
  - RENAL FAILURE [None]
  - MYOCARDIAL INFARCTION [None]
  - DEATH [None]
  - HIP FRACTURE [None]
